FAERS Safety Report 9651010 (Version 2)
Quarter: 2013Q4

REPORT INFORMATION
  Report Type: Spontaneous
  Country: JP (occurrence: JP)
  Receive Date: 20131029
  Receipt Date: 20131029
  Transmission Date: 20140711
  Serious: Yes (Other)
  Sender: FDA-Public Use
  Company Number: PHHY2013JP101337

PATIENT
  Sex: Male

DRUGS (2)
  1. ZOMETA [Suspect]
     Indication: METASTASES TO BONE
     Dosage: 4 MG, MONTHLY
     Route: 041
  2. ZOMETA [Suspect]
     Dosage: 4 MG, MONTHLY
     Route: 041
     Dates: start: 201310

REACTIONS (2)
  - Renal disorder [Recovered/Resolved]
  - Renal impairment [Unknown]
